FAERS Safety Report 5134094-5 (Version None)
Quarter: 2006Q4

REPORT INFORMATION
  Report Type: 
  Country: None (occurrence: None)
  Receive Date: 20061024
  Receipt Date: 20060502
  Transmission Date: 20070319
  Serious: Yes (Hospitalization)
  Sender: FDA-Public Use
  Company Number: US-BRISTOL-MYERS SQUIBB COMPANY-13363882

PATIENT
  Age: 55 Year
  Sex: Female

DRUGS (8)
  1. CETUXIMAB [Suspect]
     Indication: NON-SMALL CELL LUNG CANCER
     Dosage: INITIATED ON 24-FEB-2006.
     Route: 042
     Dates: start: 20060427, end: 20060427
  2. CARBOPLATIN [Suspect]
     Indication: NON-SMALL CELL LUNG CANCER
     Route: 042
     Dates: start: 20060427, end: 20060427
  3. TAXOL [Suspect]
     Indication: NON-SMALL CELL LUNG CANCER
     Route: 042
     Dates: start: 20060427, end: 20060427
  4. ADVAIR HFA [Concomitant]
  5. AUGMENTIN '125' [Concomitant]
     Dates: start: 20060430
  6. LEXAPRO [Concomitant]
  7. PRILOSEC [Concomitant]
  8. ASPIRIN [Concomitant]

REACTIONS (1)
  - CELLULITIS [None]
